FAERS Safety Report 4793811-4 (Version None)
Quarter: 2005Q4

REPORT INFORMATION
  Report Type: 
  Country: None (occurrence: None)
  Receive Date: 20051011
  Receipt Date: 20050927
  Transmission Date: 20060501
  Serious: Yes (Hospitalization)
  Sender: FDA-Public Use
  Company Number: US-AMGEN-US152866

PATIENT
  Sex: Male
  Weight: 79.5 kg

DRUGS (2)
  1. EPOGEN [Suspect]
     Indication: ANAEMIA OF MALIGNANT DISEASE
     Dates: start: 20050825, end: 20050901
  2. IRON DEXTRAN [Concomitant]
     Dates: start: 20050901

REACTIONS (5)
  - DEHYDRATION [None]
  - INSOMNIA [None]
  - NAUSEA [None]
  - OEDEMA PERIPHERAL [None]
  - VOMITING PROJECTILE [None]
